FAERS Safety Report 11677853 (Version 4)
Quarter: 2016Q1

REPORT INFORMATION
  Report Type: Spontaneous
  Country: US (occurrence: US)
  Receive Date: 20151028
  Receipt Date: 20160302
  Transmission Date: 20160525
  Serious: Yes (Hospitalization)
  Sender: FDA-Public Use
  Company Number: US-ACTELION-A-NJ2015-126174

PATIENT
  Age: 48 Year
  Sex: Female

DRUGS (2)
  1. ERYTHROMYCIN. [Suspect]
     Active Substance: ERYTHROMYCIN
     Indication: PRODUCT USED FOR UNKNOWN INDICATION
     Dosage: UNK
     Route: 065
     Dates: start: 20160216, end: 20160218
  2. VELETRI [Suspect]
     Active Substance: EPOPROSTENOL
     Indication: PULMONARY ARTERIAL HYPERTENSION
     Dosage: 37 NG/KG, PER MIN
     Route: 042
     Dates: start: 20130211

REACTIONS (10)
  - Dizziness [Unknown]
  - Dermatitis contact [Unknown]
  - Catheter site pain [Unknown]
  - Catheter placement [Unknown]
  - Device related infection [Unknown]
  - Palpitations [Unknown]
  - Catheter site warmth [Unknown]
  - Central venous catheter removal [Unknown]
  - Catheter site erythema [Unknown]
  - Musculoskeletal discomfort [Unknown]

NARRATIVE: CASE EVENT DATE: 20151013
